FAERS Safety Report 25524295 (Version 2)
Quarter: 2025Q3

REPORT INFORMATION
  Report Type: Spontaneous
  Country: EU (occurrence: EU)
  Receive Date: 20250707
  Receipt Date: 20250710
  Transmission Date: 20251021
  Serious: Yes (Death, Hospitalization, Other)
  Sender: ELI LILLY AND COMPANY
  Company Number: EU-ELI_LILLY_AND_COMPANY-FR202507003832

PATIENT
  Age: 35 Year
  Sex: Male
  Weight: 82 kg

DRUGS (23)
  1. GEMCITABINE HYDROCHLORIDE [Suspect]
     Active Substance: GEMCITABINE HYDROCHLORIDE
     Indication: Lung adenocarcinoma stage IV
     Route: 042
     Dates: start: 20231006
  2. GEMCITABINE HYDROCHLORIDE [Suspect]
     Active Substance: GEMCITABINE HYDROCHLORIDE
     Dosage: 1 DOSAGE FORM, WEEKLY (1/W)
     Route: 042
     Dates: start: 20231027, end: 20231103
  3. GEMCITABINE HYDROCHLORIDE [Suspect]
     Active Substance: GEMCITABINE HYDROCHLORIDE
     Dosage: 1 DOSAGE FORM, WEEKLY (1/W)
     Route: 042
     Dates: start: 20231013, end: 20231106
  4. GEMCITABINE HYDROCHLORIDE [Suspect]
     Active Substance: GEMCITABINE HYDROCHLORIDE
     Dosage: 1 DOSAGE FORM, WEEKLY (1/W)
     Route: 042
     Dates: start: 20231117, end: 20231124
  5. GEMCITABINE HYDROCHLORIDE [Suspect]
     Active Substance: GEMCITABINE HYDROCHLORIDE
     Route: 042
     Dates: start: 20231208, end: 20231208
  6. GEMCITABINE HYDROCHLORIDE [Suspect]
     Active Substance: GEMCITABINE HYDROCHLORIDE
     Route: 042
     Dates: start: 20231229, end: 20240105
  7. GEMCITABINE HYDROCHLORIDE [Suspect]
     Active Substance: GEMCITABINE HYDROCHLORIDE
     Route: 042
     Dates: start: 20240119, end: 20240126
  8. TAGRISSO [Suspect]
     Active Substance: OSIMERTINIB
     Indication: Lung adenocarcinoma stage IV
     Dosage: 80 MG, DAILY (L4)
     Route: 048
     Dates: start: 20200305
  9. TAGRISSO [Suspect]
     Active Substance: OSIMERTINIB
     Dosage: 80 MG, DAILY (L5)
     Route: 048
     Dates: start: 20200831
  10. TAGRISSO [Suspect]
     Active Substance: OSIMERTINIB
     Route: 048
  11. TAGRISSO [Suspect]
     Active Substance: OSIMERTINIB
     Route: 048
  12. FILGRASTIM [Concomitant]
     Active Substance: FILGRASTIM
     Indication: Prophylaxis
  13. TRAMADOL [Concomitant]
     Active Substance: TRAMADOL
     Indication: Product used for unknown indication
     Dates: start: 20081202
  14. DOLIPRANE [Concomitant]
     Active Substance: ACETAMINOPHEN
     Indication: Product used for unknown indication
  15. CRIZOTINIB [Concomitant]
     Active Substance: CRIZOTINIB
     Indication: Lung adenocarcinoma stage IV
  16. AMLODIPINE [Concomitant]
     Active Substance: AMLODIPINE BESYLATE
     Indication: Product used for unknown indication
  17. FUROSEMIDE [Concomitant]
     Active Substance: FUROSEMIDE
     Indication: Product used for unknown indication
  18. FOLIC ACID [Concomitant]
     Active Substance: FOLIC ACID
     Indication: Product used for unknown indication
  19. URAPIDIL [Concomitant]
     Active Substance: URAPIDIL
     Indication: Product used for unknown indication
  20. ACETAMINOPHEN [Concomitant]
     Active Substance: ACETAMINOPHEN
     Indication: Product used for unknown indication
  21. PREDNISONE [Concomitant]
     Active Substance: PREDNISONE
     Indication: Product used for unknown indication
  22. SOLU-MEDROL [Concomitant]
     Active Substance: METHYLPREDNISOLONE SODIUM SUCCINATE
     Indication: Product used for unknown indication
  23. CHLORPROMAZINE [Concomitant]
     Active Substance: CHLORPROMAZINE
     Indication: Product used for unknown indication

REACTIONS (22)
  - Myositis [Fatal]
  - Thrombotic microangiopathy [Fatal]
  - Respiratory distress [Fatal]
  - Epilepsy [Unknown]
  - Confusional state [Unknown]
  - Pulmonary embolism [Unknown]
  - Anaemia macrocytic [Unknown]
  - Normochromic anaemia [Unknown]
  - Acute kidney injury [Unknown]
  - Cardiac failure [Unknown]
  - Oedema peripheral [Unknown]
  - Anaemia [Unknown]
  - Asthenia [Unknown]
  - Herpes simplex [Unknown]
  - Angiopathy [Unknown]
  - Hypertension [Unknown]
  - Haemoptysis [Unknown]
  - Memory impairment [Not Recovered/Not Resolved]
  - Urine abnormality [Unknown]
  - Malaise [Unknown]
  - Pyrexia [Unknown]
  - Myalgia [Unknown]

NARRATIVE: CASE EVENT DATE: 20231001
